FAERS Safety Report 19916967 (Version 1)
Quarter: 2021Q4

REPORT INFORMATION
  Report Type: Spontaneous
  Country: US (occurrence: US)
  Receive Date: 20211005
  Receipt Date: 20211005
  Transmission Date: 20220303
  Serious: Yes (Other)
  Sender: FDA-Public Use
  Company Number: US-DRREDDYS-SPO/USA/21/0142308

PATIENT
  Age: 16 Year
  Sex: Male

DRUGS (1)
  1. ZENATANE [Suspect]
     Active Substance: ISOTRETINOIN
     Indication: Product used for unknown indication
     Dosage: RMA ISSUE DATE: 22 FEBRUARY 2021 5:18:22 PM, 19 MARCH 2021 11:39:21 AM, 15 APRIL 2021 5:27:04 PM, 03

REACTIONS (2)
  - Depression [Unknown]
  - Anxiety [Unknown]
